FAERS Safety Report 23336795 (Version 2)
Quarter: 2024Q1

REPORT INFORMATION
  Report Type: Spontaneous
  Country: FR (occurrence: FR)
  Receive Date: 20231226
  Receipt Date: 20240116
  Transmission Date: 20240409
  Serious: Yes (Hospitalization)
  Sender: FDA-Public Use
  Company Number: None

PATIENT

DRUGS (11)
  1. IBUPROFEN [Interacting]
     Active Substance: IBUPROFEN
     Indication: Toothache
     Dosage: 400 MG, TID
     Route: 048
     Dates: start: 202311, end: 202311
  2. TERALITHE [Interacting]
     Active Substance: LITHIUM CARBONATE
     Indication: Bipolar disorder relapse prophylaxis
     Dosage: 250 MG, BID (MORNING AND EVENING)
     Route: 048
     Dates: end: 20231128
  3. MELATONIN [Concomitant]
     Active Substance: MELATONIN
     Indication: Product used for unknown indication
     Dosage: UNK
  4. ATORVASTATIN [Concomitant]
     Active Substance: ATORVASTATIN
     Indication: Product used for unknown indication
     Dosage: UNK
  5. METOPIMAZINE [Concomitant]
     Active Substance: METOPIMAZINE
     Indication: Product used for unknown indication
     Dosage: UNK
  6. LEVOTHYROXINE [Concomitant]
     Active Substance: LEVOTHYROXINE
     Indication: Product used for unknown indication
     Dosage: UNK
  7. EMSAM [Concomitant]
     Active Substance: SELEGILINE
     Indication: Product used for unknown indication
     Dosage: UNK
  8. ZOPICLONE [Concomitant]
     Active Substance: ZOPICLONE
     Indication: Product used for unknown indication
     Dosage: UNK
  9. BENSERAZIDE HYDROCHLORIDE\LEVODOPA [Concomitant]
     Active Substance: BENSERAZIDE HYDROCHLORIDE\LEVODOPA
     Indication: Product used for unknown indication
     Dosage: UNK
  10. METFORMIN [Concomitant]
     Active Substance: METFORMIN HYDROCHLORIDE
     Indication: Product used for unknown indication
     Dosage: UNK
  11. TEMESTA [Concomitant]
     Indication: Product used for unknown indication
     Dosage: UNK

REACTIONS (5)
  - Antipsychotic drug level above therapeutic [Recovered/Resolved]
  - Gait inability [Recovered/Resolved]
  - Confusional state [Recovered/Resolved]
  - Dysarthria [Recovered/Resolved]
  - Somnolence [Recovered/Resolved]

NARRATIVE: CASE EVENT DATE: 20231101
